FAERS Safety Report 22377815 (Version 1)
Quarter: 2023Q2

REPORT INFORMATION
  Report Type: Spontaneous
  Country: IT (occurrence: IT)
  Receive Date: 20230529
  Receipt Date: 20230529
  Transmission Date: 20230722
  Serious: Yes (Hospitalization, Other)
  Sender: FDA-Public Use
  Company Number: None

PATIENT
  Age: 50 Year
  Sex: Female

DRUGS (2)
  1. LORAZEPAM [Suspect]
     Active Substance: LORAZEPAM
     Indication: Drug abuse
     Dosage: 20 MG, TOTAL
     Route: 048
     Dates: start: 20220817, end: 20220817
  2. PAROXETINE [Suspect]
     Active Substance: PAROXETINE
     Indication: Drug abuse
     Dosage: 280 MG, TOTAL
     Route: 048
     Dates: start: 20220817, end: 20220817

REACTIONS (3)
  - Sopor [Recovered/Resolved]
  - Drug abuse [Recovered/Resolved]
  - Hypotension [Recovered/Resolved]

NARRATIVE: CASE EVENT DATE: 20220817
